FAERS Safety Report 9057500 (Version 1)
Quarter: 2013Q1

REPORT INFORMATION
  Report Type: Spontaneous
  Country: US (occurrence: US)
  Receive Date: 20130204
  Receipt Date: 20130204
  Transmission Date: 20140127
  Serious: No
  Sender: FDA-Public Use
  Company Number: US-TEVA-382671USA

PATIENT
  Sex: Female
  Weight: 62.2 kg

DRUGS (4)
  1. PROAIR HFA [Suspect]
     Indication: LUNG DISORDER
     Dosage: VARIES
     Route: 055
  2. ALVESCO [Concomitant]
     Indication: LUNG DISORDER
     Dosage: 2 PUFFS QD-BID
     Route: 055
     Dates: start: 2011
  3. SINGULAIR [Concomitant]
     Indication: HYPERSENSITIVITY
     Dosage: 10 MILLIGRAM DAILY;
     Route: 048
  4. SINGULAIR [Concomitant]
     Indication: ASTHMA

REACTIONS (2)
  - Stomatitis [Not Recovered/Not Resolved]
  - Glossitis [Not Recovered/Not Resolved]
